FAERS Safety Report 6473271-8 (Version None)
Quarter: 2009Q4

REPORT INFORMATION
  Report Type: 
  Country: None (occurrence: None)
  Receive Date: 20091204
  Receipt Date: 20090323
  Transmission Date: 20100525
  Serious: Yes (Other)
  Sender: FDA-Public Use
  Company Number: US-ELI_LILLY_AND_COMPANY-US200809006052

PATIENT
  Sex: Female

DRUGS (15)
  1. HUMALOG MIX 75/25 [Suspect]
     Indication: DIABETES MELLITUS
     Dosage: 76 U, EACH MORNING
     Dates: start: 20010101
  2. HUMALOG MIX 75/25 [Suspect]
     Dosage: 90 U, EACH EVENING
  3. HUMALOG [Suspect]
  4. CYMBALTA [Concomitant]
     Dosage: 60 MG, EACH MORNING
     Dates: start: 20060301
  5. SYMLIN [Concomitant]
     Dosage: 20 MG, EACH MORNING
  6. SYMLIN [Concomitant]
     Dosage: 20 MG, EACH EVENING
  7. AVALIDE [Concomitant]
     Dosage: UNK, EACH MORNING
  8. AGGRENOX [Concomitant]
     Dosage: UNK, EACH MORNING
  9. AGGRENOX [Concomitant]
     Dosage: UNK, EACH EVENING
  10. GABAPENTIN [Concomitant]
     Dosage: UNK, UNK
  11. GLYCOPYRROLATE [Concomitant]
     Dosage: 2 MG, EACH EVENING
  12. VITAMINS [Concomitant]
     Dosage: UNK, DAILY (1/D)
  13. LIPITOR [Concomitant]
     Dosage: 40 MG, EACH EVENING
  14. ZETIA [Concomitant]
     Dosage: 10 MG, EACH EVENING
  15. MECLIZINE [Concomitant]
     Indication: NAUSEA

REACTIONS (21)
  - ACCIDENT [None]
  - ARTERIOSCLEROSIS [None]
  - BLINDNESS UNILATERAL [None]
  - BLOOD GLUCOSE INCREASED [None]
  - CATARACT [None]
  - DIABETIC MICROANGIOPATHY [None]
  - DIZZINESS [None]
  - DRUG DISPENSING ERROR [None]
  - FALL [None]
  - GLYCOSYLATED HAEMOGLOBIN INCREASED [None]
  - HEADACHE [None]
  - HYPOACUSIS [None]
  - HYPOAESTHESIA [None]
  - IRRITABLE BOWEL SYNDROME [None]
  - NAUSEA [None]
  - OPTIC ISCHAEMIC NEUROPATHY [None]
  - PAPILLOEDEMA [None]
  - PARAESTHESIA [None]
  - PUPILLARY DEFORMITY [None]
  - VERTIGO [None]
  - VISION BLURRED [None]
